FAERS Safety Report 11573916 (Version 2)
Quarter: 2015Q4

REPORT INFORMATION
  Report Type: Report from Study
  Country: US (occurrence: US)
  Receive Date: 20150930
  Receipt Date: 20151003
  Transmission Date: 20160304
  Serious: Yes (Other)
  Sender: FDA-Public Use
  Company Number: US-AMGEN-USASP2015099070

PATIENT
  Age: 71 Year
  Sex: Male

DRUGS (1)
  1. ENBREL [Suspect]
     Active Substance: ETANERCEPT
     Indication: PSORIATIC ARTHROPATHY
     Dosage: 50 MG, UNK
     Route: 065
     Dates: start: 20050318

REACTIONS (4)
  - Cough [Unknown]
  - Prostate cancer [Unknown]
  - Arthralgia [Unknown]
  - Penile prosthesis insertion [Recovered/Resolved]

NARRATIVE: CASE EVENT DATE: 201310
